FAERS Safety Report 7959966-5 (Version None)
Quarter: 2011Q4

REPORT INFORMATION
  Report Type: 
  Country: None (occurrence: None)
  Receive Date: 20111206
  Receipt Date: 20111130
  Transmission Date: 20120403
  Serious: Yes (Death)
  Sender: FDA-Public Use
  Company Number: CA-PFIZER INC-2011268225

PATIENT
  Age: 53 Year
  Sex: Male
  Weight: 82.5 kg

DRUGS (4)
  1. BENEFIX [Suspect]
     Dosage: 4000 IU, 2X/WEEK
     Route: 042
     Dates: start: 20110824
  2. BENEFIX [Suspect]
     Indication: FACTOR IX DEFICIENCY
     Dosage: 3000 IU, WEEKLY
     Route: 042
  3. CYKLOKAPRON [Concomitant]
     Indication: PROCOAGULANT THERAPY
     Dosage: 2 TABLETS, AS NEEDED
  4. COLACE [Concomitant]
     Indication: CONSTIPATION PROPHYLAXIS
     Dosage: 30 MG, 2X/DAY AS NEEDED

REACTIONS (2)
  - ACCIDENTAL DEATH [None]
  - ROAD TRAFFIC ACCIDENT [None]
